FAERS Safety Report 24389900 (Version 2)
Quarter: 2024Q4

REPORT INFORMATION
  Report Type: Spontaneous
  Country: TW (occurrence: TW)
  Receive Date: 20241003
  Receipt Date: 20241016
  Transmission Date: 20250114
  Serious: Yes (Other)
  Sender: UCB
  Company Number: TW-UCBSA-2024049205

PATIENT

DRUGS (1)
  1. BRIVIACT [Suspect]
     Active Substance: BRIVARACETAM
     Indication: Seizure
     Dosage: UNK

REACTIONS (3)
  - Renal impairment [Unknown]
  - Continuous haemodiafiltration [Unknown]
  - Electroencephalogram abnormal [Unknown]
